FAERS Safety Report 8202508-X (Version None)
Quarter: 2012Q1

REPORT INFORMATION
  Report Type: 
  Country: None (occurrence: None)
  Receive Date: 20120312
  Receipt Date: 20120309
  Transmission Date: 20120608
  Serious: No
  Sender: FDA-Public Use
  Company Number: US-BAYER-2012-023701

PATIENT
  Sex: Female

DRUGS (11)
  1. BETASERON [Suspect]
     Indication: PRODUCT USED FOR UNKNOWN INDICATION
     Dosage: 1 ML, QOD
     Route: 058
  2. IBUPROFEN [Concomitant]
  3. BETASERON [Suspect]
     Dosage: 0.25 ML QOD
     Route: 058
  4. BACLOFEN [Concomitant]
     Dosage: 10 MG, UNK
  5. CYMBALTA [Concomitant]
     Dosage: 20 MG, UNK
  6. ACETAMINOPHEN AND HYDROCODONE BITARTRATE [Concomitant]
     Dosage: 2.5-500
  7. SINGULAIR [Concomitant]
     Dosage: 10 MG
  8. BETASERON [Suspect]
     Dosage: 0.75 ML, QOD
     Route: 058
  9. PRILOSEC [Concomitant]
     Dosage: 40 MG
  10. BETASERON [Suspect]
     Dosage: 0.5 ML QOD
     Route: 058
  11. XANAX [Concomitant]
     Dosage: 0.25 MG, UNK

REACTIONS (6)
  - INJECTION SITE PAIN [None]
  - ERYTHEMA [None]
  - PAIN [None]
  - INJECTION SITE REACTION [None]
  - SWELLING [None]
  - INFLUENZA LIKE ILLNESS [None]
